FAERS Safety Report 7646605-6 (Version None)
Quarter: 2011Q3

REPORT INFORMATION
  Report Type: 
  Country: None (occurrence: None)
  Receive Date: 20110801
  Receipt Date: 20110720
  Transmission Date: 20111222
  Serious: Yes (Disabling)
  Sender: FDA-Public Use
  Company Number: AU-AMGEN-AUSSP2011036800

PATIENT
  Age: 58 Year
  Sex: Male

DRUGS (7)
  1. GRANISETRON [Suspect]
     Dosage: 3 MG, UNK
     Route: 042
     Dates: start: 20110517
  2. VINCRISTINE SULFATE [Suspect]
     Dosage: 2 MG, UNK
     Route: 042
     Dates: start: 20110517
  3. METHOTREXATE [Suspect]
     Dosage: 12 MG, UNK
     Route: 050
     Dates: start: 20110517
  4. PEGFILGRASTIM [Suspect]
     Indication: PRODUCT USED FOR UNKNOWN INDICATION
     Dosage: 6 MG, UNK
     Route: 058
     Dates: start: 20110518
  5. MABTHERA [Suspect]
     Dosage: 800 MG, UNK
     Route: 042
     Dates: start: 20110517
  6. CYCLOPHOSPHAMIDE [Suspect]
     Dosage: 1500 MG, UNK
     Route: 042
     Dates: start: 20110517
  7. DOXORUBICIN HCL [Suspect]
     Dosage: 100 MG, UNK
     Route: 040
     Dates: start: 20110517

REACTIONS (3)
  - PHOTOSENSITIVITY REACTION [None]
  - HEADACHE [None]
  - MUSCULOSKELETAL STIFFNESS [None]
